APPROVED DRUG PRODUCT: NAPROXEN SODIUM
Active Ingredient: NAPROXEN SODIUM
Strength: 220MG
Dosage Form/Route: TABLET;ORAL
Application: A079096 | Product #001
Applicant: AMNEAL PHARMACEUTICALS NY LLC
Approved: Dec 16, 2008 | RLD: No | RS: No | Type: OTC